FAERS Safety Report 9612939 (Version 1)
Quarter: 2013Q4

REPORT INFORMATION
  Report Type: Spontaneous
  Country: PT (occurrence: PT)
  Receive Date: 20131010
  Receipt Date: 20131010
  Transmission Date: 20140711
  Serious: Yes (Hospitalization)
  Sender: FDA-Public Use
  Company Number: PT-MYLANLABS-2013S1021915

PATIENT
  Age: 48 Year
  Sex: Male

DRUGS (2)
  1. PREDNISOLONE [Suspect]
     Indication: REITER^S SYNDROME
     Dosage: 40MG
     Route: 048
  2. SULFASALAZINE [Concomitant]
     Indication: REITER^S SYNDROME
     Route: 048

REACTIONS (3)
  - Zygomycosis [Recovering/Resolving]
  - Gastrointestinal fungal infection [Recovering/Resolving]
  - Septic shock [Recovering/Resolving]
